FAERS Safety Report 14127423 (Version 3)
Quarter: 2018Q1

REPORT INFORMATION
  Report Type: Spontaneous
  Country: US (occurrence: US)
  Receive Date: 20171026
  Receipt Date: 20180222
  Transmission Date: 20180508
  Serious: Yes (Other)
  Sender: FDA-Public Use
  Company Number: US-TEVA-809801USA

PATIENT
  Age: 68 Year
  Sex: Female
  Weight: 95.34 kg

DRUGS (6)
  1. CARBIDOPA AND LEVODOPA [Suspect]
     Active Substance: CARBIDOPA\LEVODOPA
     Indication: PARKINSON^S DISEASE
     Dosage: 25 MG/100 MG
     Route: 065
     Dates: start: 20170918, end: 20170925
  2. AMANTADINE. [Concomitant]
     Active Substance: AMANTADINE HYDROCHLORIDE
     Indication: PARKINSON^S DISEASE
     Dosage: 200 MILLIGRAM DAILY;
  3. ISRADIPINE. [Concomitant]
     Active Substance: ISRADIPINE
     Indication: PARKINSON^S DISEASE
  4. ASPIRIN. [Concomitant]
     Active Substance: ASPIRIN
  5. MELATONIN [Concomitant]
     Active Substance: MELATONIN
  6. SINEMET [Concomitant]
     Active Substance: CARBIDOPA\LEVODOPA
     Dosage: 25/100MG

REACTIONS (11)
  - Parkinson^s disease [Unknown]
  - Tremor [Recovered/Resolved]
  - Nausea [Recovered/Resolved]
  - Gait disturbance [Recovered/Resolved]
  - Menstrual disorder [Unknown]
  - Drug ineffective [Unknown]
  - Product substitution issue [Unknown]
  - Dystonia [Recovered/Resolved]
  - Dyskinesia [Recovered/Resolved]
  - Drug effect delayed [Unknown]
  - Headache [Recovered/Resolved]

NARRATIVE: CASE EVENT DATE: 20170914
